FAERS Safety Report 7588832-2 (Version None)
Quarter: 2011Q3

REPORT INFORMATION
  Report Type: 
  Country: None (occurrence: None)
  Receive Date: 20110705
  Receipt Date: 20110628
  Transmission Date: 20111222
  Serious: Yes (Hospitalization)
  Sender: FDA-Public Use
  Company Number: IT-JNJFOC-20110612256

PATIENT
  Sex: Male

DRUGS (19)
  1. ALDACTONE [Concomitant]
     Indication: PRODUCT USED FOR UNKNOWN INDICATION
     Route: 048
     Dates: start: 20100723, end: 20110411
  2. ATORVASTATIN CALCIUM [Concomitant]
     Indication: PRODUCT USED FOR UNKNOWN INDICATION
     Route: 048
     Dates: start: 20100508, end: 20110411
  3. DURAGESIC-100 [Suspect]
     Indication: PRODUCT USED FOR UNKNOWN INDICATION
     Route: 062
     Dates: start: 20110408, end: 20110411
  4. COUMADIN [Suspect]
     Indication: CARDIAC VALVE PROSTHESIS USER
     Dosage: SUSPENDED WARFARIN FOR 3 DAYS
     Route: 048
     Dates: start: 20100930, end: 20110411
  5. ALLOPURINOL [Concomitant]
     Indication: PRODUCT USED FOR UNKNOWN INDICATION
     Route: 048
     Dates: start: 20110117, end: 20110411
  6. ROCALTROL [Concomitant]
     Indication: PRODUCT USED FOR UNKNOWN INDICATION
     Route: 048
     Dates: start: 20110221, end: 20110411
  7. NICETILE [Concomitant]
     Indication: PRODUCT USED FOR UNKNOWN INDICATION
     Route: 030
     Dates: start: 20110405, end: 20110411
  8. COUMADIN [Suspect]
     Route: 048
  9. OMEPRAZOLE [Concomitant]
     Indication: PRODUCT USED FOR UNKNOWN INDICATION
     Route: 048
     Dates: start: 20100508, end: 20110411
  10. HUMALOG [Concomitant]
     Indication: PRODUCT USED FOR UNKNOWN INDICATION
     Route: 058
     Dates: start: 20100508, end: 20110411
  11. FOLIN [Concomitant]
     Indication: PRODUCT USED FOR UNKNOWN INDICATION
     Route: 048
     Dates: start: 20100508, end: 20110411
  12. IBRUPROFEN [Suspect]
     Indication: PRODUCT USED FOR UNKNOWN INDICATION
     Route: 048
     Dates: start: 20110409, end: 20110411
  13. ESKIM [Concomitant]
     Indication: PRODUCT USED FOR UNKNOWN INDICATION
     Route: 048
     Dates: start: 20100723, end: 20110411
  14. LYRICA [Concomitant]
     Indication: PRODUCT USED FOR UNKNOWN INDICATION
     Route: 048
     Dates: start: 20100723, end: 20110411
  15. LANTUS [Concomitant]
     Indication: PRODUCT USED FOR UNKNOWN INDICATION
     Route: 048
     Dates: start: 20100508, end: 20110411
  16. SODIUM BICARBONATE [Concomitant]
     Indication: PRODUCT USED FOR UNKNOWN INDICATION
     Route: 048
     Dates: start: 20110405, end: 20110411
  17. CALCIUM CARBONATE [Concomitant]
     Indication: PRODUCT USED FOR UNKNOWN INDICATION
     Route: 048
     Dates: start: 20100508, end: 20110411
  18. LASIX [Concomitant]
     Indication: PRODUCT USED FOR UNKNOWN INDICATION
     Route: 048
     Dates: start: 20100508, end: 20110411
  19. CARVEDILOL [Concomitant]
     Indication: PRODUCT USED FOR UNKNOWN INDICATION
     Route: 048
     Dates: start: 20100508, end: 20110411

REACTIONS (2)
  - RENAL FAILURE ACUTE [None]
  - INTERNATIONAL NORMALISED RATIO INCREASED [None]
